FAERS Safety Report 7720357-3 (Version None)
Quarter: 2011Q3

REPORT INFORMATION
  Report Type: 
  Country: None (occurrence: None)
  Receive Date: 20110831
  Receipt Date: 20110829
  Transmission Date: 20111222
  Serious: No
  Sender: FDA-Public Use
  Company Number: US-PFIZER INC-2011200961

PATIENT
  Sex: Female
  Weight: 87.982 kg

DRUGS (2)
  1. PREMPRO [Suspect]
     Indication: MENOPAUSE
     Dosage: 0.45/1.5 MG, 1X/DAY
     Route: 048
     Dates: start: 20110728, end: 20110828
  2. HYDROCHLOROTHIAZIDE [Concomitant]
     Indication: HYPERTENSION
     Dosage: 25 MG, UNK

REACTIONS (2)
  - OEDEMA PERIPHERAL [None]
  - HEADACHE [None]
